FAERS Safety Report 25773903 (Version 1)
Quarter: 2025Q3

REPORT INFORMATION
  Report Type: Spontaneous
  Country: YE (occurrence: YE)
  Receive Date: 20250908
  Receipt Date: 20250908
  Transmission Date: 20251021
  Serious: Yes (Other)
  Sender: STRIDES
  Company Number: YE-MLMSERVICE-20250815-PI613943-00117-2

PATIENT
  Age: 25 Year
  Sex: Male

DRUGS (4)
  1. PREDNISOLONE [Suspect]
     Active Substance: PREDNISOLONE
     Indication: Adrenocortical steroid therapy
     Route: 048
  2. DEXAMETHASONE [Suspect]
     Active Substance: DEXAMETHASONE
     Indication: Upper respiratory tract infection
     Route: 065
  3. DEXAMETHASONE [Suspect]
     Active Substance: DEXAMETHASONE
     Route: 048
  4. DEXAMETHASONE [Suspect]
     Active Substance: DEXAMETHASONE
     Route: 048

REACTIONS (5)
  - Adrenal insufficiency [Recovering/Resolving]
  - Withdrawal syndrome [Unknown]
  - Hypothalamic pituitary adrenal axis suppression [Unknown]
  - Asthenia [Unknown]
  - Nausea [Unknown]
